FAERS Safety Report 15941396 (Version 3)
Quarter: 2019Q2

REPORT INFORMATION
  Report Type: Spontaneous
  Country: US (occurrence: US)
  Receive Date: 20190208
  Receipt Date: 20190501
  Transmission Date: 20190711
  Serious: Yes (Other)
  Sender: FDA-Public Use
  Company Number: US-ASTRAZENECA-2019SE10256

PATIENT
  Age: 44 Year
  Sex: Female

DRUGS (36)
  1. NEXIUM 24HR [Suspect]
     Active Substance: ESOMEPRAZOLE MAGNESIUM
     Dosage: FOR MULTIPLE AND VARIOUS YEARS
     Route: 048
  2. PRILOSEC [Suspect]
     Active Substance: OMEPRAZOLE MAGNESIUM
     Indication: GASTROOESOPHAGEAL REFLUX DISEASE
     Dosage: SEVERAL YEARS
     Route: 048
  3. GLYBURIDE. [Concomitant]
     Active Substance: GLYBURIDE
     Indication: DIABETES MELLITUS
     Dates: start: 2014
  4. PROTONIX [Suspect]
     Active Substance: PANTOPRAZOLE SODIUM
     Indication: GASTROOESOPHAGEAL REFLUX DISEASE
     Route: 065
  5. METFORMIN [Concomitant]
     Active Substance: METFORMIN HYDROCHLORIDE
     Indication: DIABETES MELLITUS
  6. LYRICA [Concomitant]
     Active Substance: PREGABALIN
  7. NITROGLYCERIN. [Concomitant]
     Active Substance: NITROGLYCERIN
     Indication: PAIN
     Dates: start: 2019
  8. NEXIUM [Suspect]
     Active Substance: ESOMEPRAZOLE MAGNESIUM
     Dosage: FOR MULTIPLE AND VARIOUS YEARS
     Route: 048
  9. PRAVASTATIN. [Concomitant]
     Active Substance: PRAVASTATIN
     Indication: BLOOD CHOLESTEROL
     Dates: start: 2015
  10. ALLOPURINOL. [Concomitant]
     Active Substance: ALLOPURINOL
     Indication: ARTHRITIS
     Dates: start: 2017
  11. VOLTAREN [Concomitant]
     Active Substance: DICLOFENAC SODIUM
     Dates: start: 2019
  12. LANTUS [Concomitant]
     Active Substance: INSULIN GLARGINE
     Indication: DIABETES MELLITUS
     Dates: start: 2017
  13. BENADRYL [Concomitant]
     Active Substance: DIPHENHYDRAMINE HYDROCHLORIDE
     Indication: MULTIPLE ALLERGIES
     Dates: start: 2017
  14. PRILOSEC [Suspect]
     Active Substance: OMEPRAZOLE MAGNESIUM
     Indication: GASTROOESOPHAGEAL REFLUX DISEASE
     Dosage: FOR MULTIPLE AND VARIOUS YEARS
     Route: 048
  15. PRILOSEC OTC [Suspect]
     Active Substance: OMEPRAZOLE MAGNESIUM
     Dosage: FOR MULTIPLE AND VARIOUS YEARS
     Route: 048
  16. ALKA-SELTZER [Concomitant]
     Active Substance: ANHYDROUS CITRIC ACID\ASPIRIN\SODIUM BICARBONATE
  17. NOVOLOG [Concomitant]
     Active Substance: INSULIN ASPART
     Indication: BLOOD INSULIN
     Dates: start: 2016
  18. BEXTRA [Concomitant]
     Active Substance: VALDECOXIB
  19. ASPIRIN. [Concomitant]
     Active Substance: ASPIRIN
     Dates: start: 2016
  20. DEXILANT [Suspect]
     Active Substance: DEXLANSOPRAZOLE
     Dosage: FOR MULTIPLE AND VARIOUS YEARS
     Route: 065
  21. PROTONIX [Suspect]
     Active Substance: PANTOPRAZOLE SODIUM
     Indication: GASTROOESOPHAGEAL REFLUX DISEASE
     Route: 065
  22. TUMS [Concomitant]
     Active Substance: CALCIUM CARBONATE
  23. ROLAIDS [Concomitant]
     Active Substance: CALCIUM CARBONATE\MAGNESIUM HYDROXIDE
  24. PEPTO-BISMOL [Concomitant]
     Active Substance: BISMUTH SUBSALICYLATE
  25. TORSEMIDE. [Concomitant]
     Active Substance: TORSEMIDE
     Indication: FLUID RETENTION
     Dates: start: 2016
  26. CARVEDILOL. [Concomitant]
     Active Substance: CARVEDILOL
     Indication: PAIN
     Dates: start: 2016
  27. PREVACID [Suspect]
     Active Substance: LANSOPRAZOLE
     Dosage: FOR MULTIPLE AND VARIOUS YEARS
     Route: 065
  28. PREVACID 24 HR [Suspect]
     Active Substance: LANSOPRAZOLE
     Dosage: FOR MULTIPLE AND VARIOUS YEARS
     Route: 065
  29. ZANTAC [Concomitant]
     Active Substance: RANITIDINE HYDROCHLORIDE
  30. RANITIDINE. [Concomitant]
     Active Substance: RANITIDINE
  31. LYRICA [Concomitant]
     Active Substance: PREGABALIN
     Indication: DIABETES MELLITUS
     Dates: start: 2017
  32. ISOSORBIDE MONONITRATE. [Concomitant]
     Active Substance: ISOSORBIDE MONONITRATE
     Indication: PAIN
     Dates: start: 2017
  33. NORTRIPTYLINE [Concomitant]
     Active Substance: NORTRIPTYLINE
     Indication: PAIN
     Dates: start: 2019
  34. LOSARTAN. [Concomitant]
     Active Substance: LOSARTAN
     Indication: BLOOD PRESSURE MEASUREMENT
     Dates: start: 2014
  35. LIDOCAINE. [Concomitant]
     Active Substance: LIDOCAINE
     Dates: start: 2019
  36. ALBUTEROL. [Concomitant]
     Active Substance: ALBUTEROL
     Indication: ASTHMA
     Dates: start: 2018

REACTIONS (8)
  - Renal failure [Not Recovered/Not Resolved]
  - Nephrogenic anaemia [Unknown]
  - Kidney infection [Not Recovered/Not Resolved]
  - Rebound acid hypersecretion [Unknown]
  - Chronic kidney disease [Unknown]
  - Diverticulum [Not Recovered/Not Resolved]
  - Renal injury [Unknown]
  - Acute kidney injury [Unknown]

NARRATIVE: CASE EVENT DATE: 2016
